FAERS Safety Report 13417303 (Version 1)
Quarter: 2017Q2

REPORT INFORMATION
  Report Type: Spontaneous
  Country: US (occurrence: US)
  Receive Date: 20170406
  Receipt Date: 20170406
  Transmission Date: 20170830
  Serious: No
  Sender: FDA-Public Use
  Company Number: US-GLAXOSMITHKLINE-US2017048309

PATIENT
  Age: 87 Year
  Sex: Female

DRUGS (1)
  1. VENTOLIN HFA [Suspect]
     Active Substance: ALBUTEROL SULFATE
     Indication: PRODUCT USED FOR UNKNOWN INDICATION
     Dosage: UNK
     Dates: start: 20170403

REACTIONS (6)
  - Wrong technique in product usage process [Unknown]
  - Overdose [Unknown]
  - Somnolence [Unknown]
  - Drug ineffective [Unknown]
  - Dizziness [Unknown]
  - Device use error [Unknown]

NARRATIVE: CASE EVENT DATE: 20170403
